FAERS Safety Report 8290398-9 (Version None)
Quarter: 2012Q2

REPORT INFORMATION
  Report Type: 
  Country: None (occurrence: None)
  Receive Date: 20120417
  Receipt Date: 20120413
  Transmission Date: 20120825
  Serious: Yes (Death, Hospitalization)
  Sender: FDA-Public Use
  Company Number: US-GENZYME-MOZO-1000604

PATIENT
  Sex: Female
  Weight: 91.4 kg

DRUGS (82)
  1. NEUPOGEN [Concomitant]
     Indication: ACUTE MYELOID LEUKAEMIA
     Dosage: 10 MCG/KG, QD
     Route: 058
     Dates: start: 20111123, end: 20111123
  2. PHENERGAN HCL [Concomitant]
     Indication: VOMITING
     Dosage: 12.5 MG, PRN
     Route: 042
  3. FEXOFENADINE W [Concomitant]
     Indication: NASAL CONGESTION
     Dosage: 1 OTHER, PRN
     Route: 048
  4. SODIUM CHLORIDE [Concomitant]
     Dosage: 1000 ML, UNK
     Route: 042
  5. SORAFENIB [Concomitant]
     Indication: ACUTE MYELOID LEUKAEMIA
     Dosage: 600 MG, BID
     Route: 048
     Dates: start: 20111123, end: 20111125
  6. ABH [Concomitant]
     Indication: NAUSEA
     Dosage: 1 OTHER, PRN
     Route: 048
  7. DILAUDID [Concomitant]
     Indication: PAIN
     Dosage: 2 MG, PRN
     Route: 048
  8. LOMOTIL [Concomitant]
     Indication: DIARRHOEA
     Dosage: 1 OTHER, PRN
     Route: 048
  9. ZOFRAN [Concomitant]
     Indication: VOMITING
     Dosage: 8 MG, PRN
     Route: 042
  10. VALTREX [Concomitant]
     Indication: ANTIVIRAL TREATMENT
     Dosage: 500 MG, QD
     Route: 048
  11. HYDRALAZINE HCL [Concomitant]
     Indication: PRODUCT USED FOR UNKNOWN INDICATION
     Dosage: 10 MG, UNK
     Route: 042
  12. HYDROMORPHONE HCL [Concomitant]
     Indication: PAIN
     Dosage: 2 MG, PRN
     Route: 048
  13. SODIUM CHLORIDE [Concomitant]
     Dosage: 10 ML, Q12HR
     Route: 042
  14. SODIUM CHLORIDE [Concomitant]
     Dosage: 1000 ML, PRN
     Route: 042
  15. NEUPOGEN [Concomitant]
     Dosage: 10 MCG/KG, QD
     Route: 058
     Dates: start: 20111205, end: 20111205
  16. CYTARABINE [Concomitant]
     Indication: ACUTE MYELOID LEUKAEMIA
     Dosage: 100 MG, ONCE
     Route: 037
     Dates: start: 20111219, end: 20111219
  17. PROTONIX [Concomitant]
     Dosage: 40 MG, UNK
     Route: 042
  18. TOPROL-XL [Concomitant]
     Indication: BLOOD PRESSURE ABNORMAL
     Dosage: 50 MG, QD
     Route: 048
  19. TRIAMCINOLONE [Concomitant]
     Indication: SKIN IRRITATION
  20. DEXTROMETHORPHAN W [Concomitant]
     Indication: COUGH
     Dosage: 10 ML, PRN
     Route: 048
  21. ONDANSETRON [Concomitant]
     Indication: NAUSEA
     Dosage: 8 MG, PRN
     Route: 042
  22. OYSTER SHELL CALCIUM [Concomitant]
     Indication: PRODUCT USED FOR UNKNOWN INDICATION
     Dosage: 500 MG, BID
     Route: 048
  23. SILVER SULFADIAZINE [Concomitant]
     Indication: THERMAL BURN
     Dosage: 1 OTHER, UNK
     Route: 061
  24. SODIUM CHLORIDE [Concomitant]
     Indication: PRODUCT USED FOR UNKNOWN INDICATION
     Dosage: 10 ML, UNK
     Route: 042
  25. ALBUTEROL [Concomitant]
     Indication: WHEEZING
     Dosage: 2.5 MG, PRN
     Route: 055
  26. AMBIEN [Concomitant]
     Indication: SLEEP DISORDER
     Dosage: 10 MG, PRN
     Route: 048
  27. PHENERGAN HCL [Concomitant]
     Indication: NAUSEA
     Dosage: 12.5 MG, PRN
     Route: 048
  28. ZOFRAN [Concomitant]
     Indication: NAUSEA
     Dosage: 8 MG, PRN
     Route: 048
  29. DIOVAN HCT [Concomitant]
     Dosage: 12.5 MG, QD
     Route: 048
  30. HEPARIN LOCK-FLUSH [Concomitant]
     Indication: INTRAVENOUS CATHETER MANAGEMENT
     Dosage: 100 U/ML, QD
     Route: 042
  31. SYNTHROID [Concomitant]
     Indication: THYROID DISORDER
     Dosage: 175 MCG, QD
     Route: 048
  32. TRIAMCINOLONE [Concomitant]
     Indication: RASH
     Dosage: 1 OTHER, BID
     Route: 061
  33. CAMPHOR W [Concomitant]
     Indication: PRURITUS
     Dosage: 1 OTHER, PRN
     Route: 061
  34. MAGNESIUM SULFATE [Concomitant]
     Dosage: 4 G, QD
     Route: 042
  35. POTASSIUM CHLORIDE [Concomitant]
     Dosage: 20 MEQ, QD
     Route: 048
  36. DOCUSATE SODIUM W [Concomitant]
     Indication: CONSTIPATION
     Dosage: 1 OTHER, PRN
     Route: 048
  37. TRAMADOL HCL [Concomitant]
     Dosage: 100 MG, PRN
     Route: 048
  38. WHITE PETROLEUM [Concomitant]
     Indication: LIP DRY
     Dosage: 91 G, PRN
     Route: 061
  39. HYCODAN [Concomitant]
     Indication: COUGH
     Dosage: 5 ML, PRN
     Route: 048
  40. PROTONIX [Concomitant]
     Indication: GASTROOESOPHAGEAL REFLUX DISEASE
     Dosage: 40 MG, QD
     Route: 048
  41. VANTIN [Concomitant]
     Indication: INFECTION PROPHYLAXIS
     Dosage: 200 MG, BID
     Route: 048
  42. FLUOCINONIDE [Concomitant]
     Indication: PRURITUS
     Dosage: 1 OTHER, BID
     Route: 061
  43. HYDROCODONE W [Concomitant]
     Dosage: 5 ML, PRN
     Route: 048
  44. HYDROMORPHONE HCL [Concomitant]
     Dosage: 4 MG, PRN
     Route: 048
  45. INSULIN LISPRO [Concomitant]
     Indication: DIABETES MELLITUS
     Dosage: UNK
     Route: 058
  46. LINEZOLID [Concomitant]
     Indication: PRODUCT USED FOR UNKNOWN INDICATION
     Dosage: 600 MG, Q12HR
     Route: 042
  47. MOZOBIL [Suspect]
     Dosage: 240 MCG/KG, QD
     Route: 058
     Dates: start: 20111205, end: 20111205
  48. ABH [Concomitant]
     Indication: VOMITING
  49. ACETAMINOPHEN [Concomitant]
     Indication: PYREXIA
     Dosage: 650 MG, PRN
     Route: 048
  50. CEFEPIME HYDROCHLORIDE [Concomitant]
     Dosage: 1 G, TID
     Route: 042
  51. DIPHENHYDRAMINE HCL [Concomitant]
     Indication: PRODUCT USED FOR UNKNOWN INDICATION
     Dosage: 25 MG, UNK
     Route: 042
  52. GRANISETRON [Concomitant]
     Indication: PRODUCT USED FOR UNKNOWN INDICATION
     Dosage: 1 MG, Q12HR
     Route: 042
  53. THROAT PREPARATIONS [Concomitant]
     Indication: DRY MOUTH
     Dosage: UNK
     Route: 050
  54. POTASSIUM CHLORIDE [Concomitant]
     Indication: PRODUCT USED FOR UNKNOWN INDICATION
     Dosage: 30 MEQ, QD
     Route: 042
  55. MOZOBIL [Suspect]
     Indication: ACUTE MYELOID LEUKAEMIA
     Dosage: 240 MCG/KG, QD
     Route: 058
     Dates: start: 20111123, end: 20111123
  56. XANAX [Concomitant]
     Indication: ANXIETY
     Dosage: 0.5 MG, PRN
     Route: 048
  57. DIOVAN HCT [Concomitant]
     Indication: BLOOD PRESSURE ABNORMAL
     Dosage: 80 MG, QD
     Route: 048
  58. LANTUS [Concomitant]
     Indication: DIABETES MELLITUS
     Dosage: 16 U, QD
     Route: 058
  59. MAGNESIUM [Concomitant]
     Indication: MINERAL SUPPLEMENTATION
     Dosage: 266 MG, BID
     Route: 048
  60. POTASSIUM [Concomitant]
     Indication: MINERAL SUPPLEMENTATION
     Dosage: 20 MEQ, QD
     Route: 048
  61. DEXTROSE [Concomitant]
     Indication: PRODUCT USED FOR UNKNOWN INDICATION
     Dosage: 12.5 G, UNK
     Route: 042
  62. HYDROXYZINE [Concomitant]
     Indication: PRURITUS
     Dosage: 25 MG, PRN
     Route: 048
  63. INSULIN LISPRO [Concomitant]
     Dosage: UNK
     Route: 058
  64. ONDANSETRON [Concomitant]
     Indication: VOMITING
  65. DOCUSATE SODIUM W [Concomitant]
     Dosage: 2 OTHER, PRN
     Route: 048
  66. VITAMIN TAB [Concomitant]
     Indication: PRODUCT USED FOR UNKNOWN INDICATION
     Dosage: 266 MG, BID
     Route: 048
  67. SUCRALFATE [Concomitant]
     Indication: PRODUCT USED FOR UNKNOWN INDICATION
     Dosage: 1000 MG, QID
     Route: 048
  68. TRAMADOL HCL [Concomitant]
     Indication: PAIN
     Dosage: 50 MG, PRN
     Route: 048
  69. SORAFENIB [Concomitant]
     Dosage: 600 MG, BID
     Route: 048
     Dates: start: 20111205, end: 20111207
  70. TESSALON [Concomitant]
     Indication: COUGH
     Dosage: 100 MG, PRN
     Route: 048
  71. EFFEXOR XR [Concomitant]
     Indication: DEPRESSION
     Dosage: 37.5 MG, QD
     Route: 048
  72. NOVOLOG [Concomitant]
     Indication: DIABETES MELLITUS
     Dosage: 100 U/ML, TID
     Route: 058
  73. VFEND [Concomitant]
     Indication: ANTI-INFECTIVE THERAPY
     Dosage: 300 MG, BID
     Route: 048
  74. ACETAMINOPHEN [Concomitant]
     Indication: PAIN
     Dosage: 1 OTHER, PRN
     Route: 048
  75. ALUMINIUM W [Concomitant]
     Indication: DYSPEPSIA
     Dosage: 15 ML, PRN
     Route: 048
  76. CEFEPIME HYDROCHLORIDE [Concomitant]
     Indication: PRODUCT USED FOR UNKNOWN INDICATION
     Dosage: 2 G, TID
     Route: 042
  77. HYDROCODONE W [Concomitant]
     Indication: COUGH
     Dosage: 10 ML, PRN
     Route: 048
  78. HYDROCORTISONE SODIUM SUCCINATE [Concomitant]
     Indication: PRODUCT USED FOR UNKNOWN INDICATION
     Dosage: 25 MG, UNK
     Route: 042
  79. HYDROMORPHONE HCL [Concomitant]
     Dosage: 1 MG, PRN
     Route: 042
  80. MAGNESIUM SULFATE [Concomitant]
     Indication: PRODUCT USED FOR UNKNOWN INDICATION
     Dosage: 8 MEQ, QD
     Route: 042
  81. METOCLOPRAMIDE [Concomitant]
     Indication: PRODUCT USED FOR UNKNOWN INDICATION
     Dosage: 10 MG, UNK
     Route: 042
  82. SODIUM CHLORIDE [Concomitant]
     Dosage: 500 ML, QD
     Route: 042

REACTIONS (6)
  - OPPORTUNISTIC INFECTION [None]
  - FEBRILE NEUTROPENIA [None]
  - FLUID OVERLOAD [None]
  - LYMPHOPENIA [None]
  - DEATH [None]
  - CONVULSION [None]
